FAERS Safety Report 25637132 (Version 2)
Quarter: 2025Q3

REPORT INFORMATION
  Report Type: Report from Study
  Country: US (occurrence: US)
  Receive Date: 20250804
  Receipt Date: 20250820
  Transmission Date: 20251021
  Serious: Yes (Death, Other)
  Sender: ACADIA PHARMACEUTICALS
  Company Number: US-ACADIA PHARMACEUTICALS INC.-ACA-2025-PIM-008871

PATIENT
  Age: 78 Year
  Sex: Male

DRUGS (17)
  1. NUPLAZID [Suspect]
     Active Substance: PIMAVANSERIN TARTRATE
     Indication: Parkinson^s disease psychosis
     Dosage: 34 MILLIGRAM, QD
     Route: 048
     Dates: start: 20241003, end: 20250705
  2. CARBIDOPA LEVODOPA [Concomitant]
     Active Substance: CARBIDOPA\LEVODOPA
  3. ZOFRAN [Concomitant]
     Active Substance: ONDANSETRON HYDROCHLORIDE
  4. OMEPRAZOLE [Concomitant]
     Active Substance: OMEPRAZOLE
  5. PIROXICAM [Concomitant]
     Active Substance: PIROXICAM
  6. PRAVACHOL [Concomitant]
     Active Substance: PRAVASTATIN SODIUM
  7. ALTACE [Concomitant]
     Active Substance: RAMIPRIL
  8. CARAFATE [Concomitant]
     Active Substance: SUCRALFATE
  9. RAMIPRIL [Concomitant]
     Active Substance: RAMIPRIL
  10. DONEPEZIL [Concomitant]
     Active Substance: DONEPEZIL
  11. MEMANTINE [Concomitant]
     Active Substance: MEMANTINE
  12. STOOL SOFTENER (DOCUSATE) [Concomitant]
     Active Substance: DOCUSATE
  13. DIETARY SUPPLEMENT\HERBALS [Concomitant]
     Active Substance: DIETARY SUPPLEMENT\HERBALS
  14. VITAMIN C [Concomitant]
     Active Substance: ASCORBIC ACID
  15. ZINC [Concomitant]
     Active Substance: ZINC
  16. CHOLECALCIFEROL [Concomitant]
     Active Substance: CHOLECALCIFEROL
  17. TYLENOL [Concomitant]
     Active Substance: ACETAMINOPHEN

REACTIONS (1)
  - Death [Fatal]

NARRATIVE: CASE EVENT DATE: 20250705
